FAERS Safety Report 9843343 (Version 1)
Quarter: 2013Q4

REPORT INFORMATION
  Report Type: Spontaneous
  Country: US (occurrence: None)
  Receive Date: 20131223
  Receipt Date: 20131223
  Transmission Date: 20140711
  Serious: No
  Sender: FDA-Public Use
  Company Number: 219401LEO

PATIENT
  Sex: Female

DRUGS (5)
  1. PICATO (0.015%,GEL) [Suspect]
     Indication: ACTINIC KERATOSIS
     Route: 061
     Dates: start: 20121017
  2. RESTASIS (CICLOSPORIN) (EYE DROPS) [Concomitant]
  3. CALCIUM (CALCIUM) [Concomitant]
  4. VITAMIN D (ERGOCALCIFEROL) [Concomitant]
  5. MULTIVITAMIN (MULTIVITAMIN/00831701/) [Concomitant]

REACTIONS (6)
  - Blister [None]
  - Burning sensation [None]
  - Scab [None]
  - Off label use [None]
  - Incorrect drug administration duration [None]
  - Prescribed overdose [None]
